FAERS Safety Report 13989068 (Version 4)
Quarter: 2019Q1

REPORT INFORMATION
  Report Type: Spontaneous
  Country: US (occurrence: US)
  Receive Date: 20170919
  Receipt Date: 20190128
  Transmission Date: 20190417
  Serious: Yes (Death, Life-Threatening, Hospitalization, Other)
  Sender: FDA-Public Use
  Company Number: US-SUN PHARMACEUTICAL INDUSTRIES LTD-2017US-150130

PATIENT
  Age: 66 Year
  Sex: Male

DRUGS (21)
  1. LEVETIRACETAM. [Concomitant]
     Active Substance: LEVETIRACETAM
     Indication: CENTRAL NERVOUS SYSTEM LYMPHOMA
     Dosage: UNK
     Route: 065
  2. VANCOMYCIN [Suspect]
     Active Substance: VANCOMYCIN
     Indication: PRODUCT USED FOR UNKNOWN INDICATION
     Dosage: UNK
     Route: 065
  3. PIPERACILLIN AND TAZOBACTAM [Suspect]
     Active Substance: PIPERACILLIN SODIUM\TAZOBACTAM SODIUM
     Indication: PRODUCT USED FOR UNKNOWN INDICATION
     Dosage: UNK
     Route: 065
  4. COUMADIN [Suspect]
     Active Substance: WARFARIN SODIUM
     Indication: FACTOR V LEIDEN MUTATION
     Dosage: UNK
     Route: 065
  5. AZITHROMYCIN ANHYDROUS. [Suspect]
     Active Substance: AZITHROMYCIN ANHYDROUS
     Indication: PRODUCT USED FOR UNKNOWN INDICATION
     Dosage: UNK
     Route: 065
  6. RITUXIMAB. [Suspect]
     Active Substance: RITUXIMAB
     Indication: CENTRAL NERVOUS SYSTEM LYMPHOMA
     Dosage: 375 MG/M2 MILLIGRAM(S)/SQ. METER, DAYS (3,10,17,24)
     Route: 042
  7. METHOTREXATE. [Suspect]
     Active Substance: METHOTREXATE
     Indication: DIFFUSE LARGE B-CELL LYMPHOMA
     Dosage: MG/M2 MILLIGRAM(S)/SQ. METER, DAY 1 AND 15
     Route: 042
  8. BACTRIM [Suspect]
     Active Substance: SULFAMETHOXAZOLE\TRIMETHOPRIM
     Indication: PNEUMOCYSTIS JIROVECII PNEUMONIA
     Dosage: UNK
     Route: 042
  9. DEXAMETHASONE. [Suspect]
     Active Substance: DEXAMETHASONE
     Indication: DIFFUSE LARGE B-CELL LYMPHOMA
     Dosage: 4 MILLIGRAM, DAILY
     Route: 048
  10. DEXAMETHASONE. [Suspect]
     Active Substance: DEXAMETHASONE
     Dosage: 4 MILLIGRAM, DAILY, TRADE NAME: DECADRON
     Route: 065
  11. DEXAMETHASONE. [Suspect]
     Active Substance: DEXAMETHASONE
     Dosage: 4 MILLIGRAM, DAILY
     Route: 048
  12. FUROSEMIDE. [Suspect]
     Active Substance: FUROSEMIDE
     Indication: RESPIRATORY FAILURE
     Dosage: UNK
     Route: 065
  13. DEXAMETHASONE. [Suspect]
     Active Substance: DEXAMETHASONE
     Dosage: TAPERED DOSE ( )
     Route: 065
  14. DEXAMETHASONE. [Suspect]
     Active Substance: DEXAMETHASONE
     Dosage: 4 MILLIGRAM, DAILY, TRADE NAME: DECADRON
     Route: 065
  15. DEXAMETHASONE. [Suspect]
     Active Substance: DEXAMETHASONE
     Dosage: 4 MILLIGRAM, DAILY
     Route: 048
  16. DEXAMETHASONE. [Suspect]
     Active Substance: DEXAMETHASONE
     Dosage: TAPERED DOSE ( )
     Route: 065
  17. RITUXIMAB. [Suspect]
     Active Substance: RITUXIMAB
     Indication: DIFFUSE LARGE B-CELL LYMPHOMA
     Dosage: 375 MG/M2 MILLIGRAM(S)/SQ. METER, DAYS (3,10,17,24)
     Route: 042
  18. TEMOZOLOMIDE. [Suspect]
     Active Substance: TEMOZOLOMIDE
     Indication: CENTRAL NERVOUS SYSTEM LYMPHOMA
     Dosage: 150 MG/M2 MILLIGRAM(S)/SQ. METER, DAYS 7-11
     Route: 048
  19. TEMOZOLOMIDE. [Suspect]
     Active Substance: TEMOZOLOMIDE
     Indication: DIFFUSE LARGE B-CELL LYMPHOMA
     Dosage: 150 MG/M2 MILLIGRAM(S)/SQ. METER, DAYS 7-11
     Route: 048
  20. DEXAMETHASONE. [Suspect]
     Active Substance: DEXAMETHASONE
     Indication: CENTRAL NERVOUS SYSTEM LYMPHOMA
     Dosage: ON REDUCED DOSE (DOSE TAPERED)
     Route: 048
  21. LEUCOVORIN. [Suspect]
     Active Substance: LEUCOVORIN
     Indication: DIFFUSE LARGE B-CELL LYMPHOMA
     Route: 065

REACTIONS (10)
  - Drug ineffective [Unknown]
  - Syncope [Fatal]
  - Acute respiratory distress syndrome [Fatal]
  - Sepsis [Fatal]
  - Computerised tomogram thorax abnormal [Fatal]
  - Pneumocystis jirovecii pneumonia [Fatal]
  - Pneumomediastinum [Fatal]
  - Respiratory failure [Fatal]
  - Lymphopenia [Fatal]
  - Off label use [Unknown]
